FAERS Safety Report 21944089 (Version 2)
Quarter: 2023Q2

REPORT INFORMATION
  Report Type: Spontaneous
  Country: US (occurrence: US)
  Receive Date: 20230202
  Receipt Date: 20230428
  Transmission Date: 20230722
  Serious: No
  Sender: FDA-Public Use
  Company Number: US-OYSTER POINT PHARMA, INC-US-OYS-22-001297

PATIENT
  Sex: Female

DRUGS (3)
  1. TYRVAYA [Suspect]
     Active Substance: VARENICLINE TARTRATE
     Indication: Dry eye
     Dosage: 0.03 MILLIGRAM, BID
     Route: 045
     Dates: start: 20221031, end: 202301
  2. BIOTIN [Concomitant]
     Active Substance: BIOTIN
     Indication: Dry mouth
     Dosage: UNK, UNK
     Route: 065
  3. ANTIALLERGIC AGENTS [Concomitant]
     Indication: Product used for unknown indication
     Dosage: UNK, UNK
     Route: 065

REACTIONS (8)
  - Laryngitis [Unknown]
  - Tongue dry [Unknown]
  - Tongue erythema [Unknown]
  - Dysgeusia [Unknown]
  - Rash [Unknown]
  - Flushing [Recovered/Resolved]
  - Throat irritation [Recovered/Resolved]
  - Product delivery mechanism issue [Unknown]

NARRATIVE: CASE EVENT DATE: 20220101
